FAERS Safety Report 22303538 (Version 1)
Quarter: 2023Q2

REPORT INFORMATION
  Report Type: Spontaneous
  Country: US (occurrence: None)
  Receive Date: 20230509
  Receipt Date: 20230509
  Transmission Date: 20230721
  Serious: No
  Sender: FDA-Public Use
  Company Number: None

PATIENT
  Age: 76 Year
  Sex: Female
  Weight: 48.67 kg

DRUGS (15)
  1. CAPECITABINE [Suspect]
     Active Substance: CAPECITABINE
     Indication: Malignant neoplasm of ampulla of Vater
     Dosage: 1000MG TWICE A DAY ORAL?
     Route: 048
  2. AMLODIPINE [Concomitant]
  3. BUPROPION [Concomitant]
  4. CREON [Concomitant]
  5. DESOXIMETASONE [Concomitant]
     Active Substance: DESOXIMETASONE
  6. VITAMIN D3 [Concomitant]
     Active Substance: CHOLECALCIFEROL
  7. FOLIC ACID [Concomitant]
     Active Substance: FOLIC ACID
  8. glipizide-metformin [Concomitant]
  9. KLOR-CON [Concomitant]
     Active Substance: POTASSIUM CHLORIDE
  10. LANTUS SOLOSTAR [Concomitant]
     Active Substance: INSULIN GLARGINE
  11. PANTOPRAZOLE [Concomitant]
     Active Substance: PANTOPRAZOLE
  12. PROCHLORPERAZINE [Concomitant]
  13. TRADJENTA [Concomitant]
     Active Substance: LINAGLIPTIN
  14. TYLENOL [Concomitant]
  15. VITAMIN B12 [Concomitant]
     Active Substance: CYANOCOBALAMIN

REACTIONS (1)
  - Palmar-plantar erythrodysaesthesia syndrome [None]
